FAERS Safety Report 14767005 (Version 2)
Quarter: 2018Q2

REPORT INFORMATION
  Report Type: Spontaneous
  Country: US (occurrence: US)
  Receive Date: 20180417
  Receipt Date: 20180424
  Transmission Date: 20180711
  Serious: Yes (Other)
  Sender: FDA-Public Use
  Company Number: US-ROCHE-2106130

PATIENT
  Age: 63 Year
  Sex: Female
  Weight: 90.8 kg

DRUGS (3)
  1. ACTEMRA [Suspect]
     Active Substance: TOCILIZUMAB
     Indication: PSORIATIC ARTHROPATHY
     Dosage: ONGOING: NO
     Route: 042
     Dates: start: 201003, end: 201006
  2. ACTEMRA [Suspect]
     Active Substance: TOCILIZUMAB
     Route: 042
     Dates: start: 20100409
  3. ACTEMRA [Suspect]
     Active Substance: TOCILIZUMAB
     Indication: ARTHRITIS
     Route: 042
     Dates: start: 201008, end: 201008

REACTIONS (15)
  - Rash [Recovered/Resolved]
  - Urticaria [Recovered/Resolved]
  - Hyperaesthesia [Unknown]
  - Burning sensation [Not Recovered/Not Resolved]
  - Lung disorder [Not Recovered/Not Resolved]
  - Urticaria [Not Recovered/Not Resolved]
  - Pruritus [Not Recovered/Not Resolved]
  - Dyspnoea [Not Recovered/Not Resolved]
  - Intentional product use issue [Unknown]
  - Off label use [Unknown]
  - Blister [Not Recovered/Not Resolved]
  - Rash [Recovering/Resolving]
  - Fatigue [Recovered/Resolved]
  - Pruritus [Unknown]
  - Anaphylactic reaction [Recovered/Resolved]

NARRATIVE: CASE EVENT DATE: 201003
